FAERS Safety Report 6818686-0 (Version None)
Quarter: 2010Q2

REPORT INFORMATION
  Report Type: 
  Country: None (occurrence: None)
  Receive Date: 20100630
  Receipt Date: 20100616
  Transmission Date: 20101027
  Serious: Yes (Hospitalization)
  Sender: FDA-Public Use
  Company Number: DSA_43330_2010

PATIENT
  Sex: Male

DRUGS (2)
  1. BUPROPION HCL [Suspect]
     Indication: DEPRESSION
     Dosage: 150 MG QD  ORAL, (300 MG QD ORAL)
     Route: 048
     Dates: start: 20100224, end: 20100316
  2. BUPROPION HCL [Suspect]
     Indication: DEPRESSION
     Dosage: 150 MG QD  ORAL, (300 MG QD ORAL)
     Route: 048
     Dates: start: 20100317, end: 20100510

REACTIONS (3)
  - CONVULSION [None]
  - PLATELET COUNT INCREASED [None]
  - STRESS [None]
